FAERS Safety Report 20763036 (Version 3)
Quarter: 2023Q2

REPORT INFORMATION
  Report Type: Spontaneous
  Country: US (occurrence: US)
  Receive Date: 20220428
  Receipt Date: 20230410
  Transmission Date: 20230722
  Serious: No
  Sender: FDA-Public Use
  Company Number: US-PFIZER INC-202200611471

PATIENT
  Age: 60 Year
  Sex: Female

DRUGS (1)
  1. IBRANCE [Suspect]
     Active Substance: PALBOCICLIB
     Dosage: 125 MG
     Dates: start: 20220414

REACTIONS (7)
  - Upper respiratory tract infection [Unknown]
  - Urinary tract infection [Recovered/Resolved]
  - Fatigue [Unknown]
  - COVID-19 [Unknown]
  - Neoplasm progression [Unknown]
  - Full blood count decreased [Unknown]
  - Infection [Unknown]

NARRATIVE: CASE EVENT DATE: 20220414
